FAERS Safety Report 6462070-9 (Version None)
Quarter: 2009Q4

REPORT INFORMATION
  Report Type: 
  Country: None (occurrence: None)
  Receive Date: 20091130
  Receipt Date: 20091126
  Transmission Date: 20100525
  Serious: Yes (Life-Threatening, Hospitalization)
  Sender: FDA-Public Use
  Company Number: PHHY2009NL52019

PATIENT
  Sex: Female

DRUGS (3)
  1. RITALIN [Suspect]
     Dosage: 1DD10MG / 1DD 5MG
     Dates: start: 20090101, end: 20090906
  2. BECLOMETASONE [Concomitant]
     Dosage: UNK
     Dates: start: 20040101
  3. MELATONIN [Concomitant]
     Dosage: 1DD 3MG
     Dates: start: 20090401

REACTIONS (3)
  - CHEST PAIN [None]
  - CYANOSIS [None]
  - SINUS TACHYCARDIA [None]
